FAERS Safety Report 15729677 (Version 5)
Quarter: 2019Q2

REPORT INFORMATION
  Report Type: Report from Study
  Country: ZA (occurrence: ZA)
  Receive Date: 20181217
  Receipt Date: 20190408
  Transmission Date: 20190711
  Serious: Yes (Life-Threatening, Hospitalization)
  Sender: FDA-Public Use
  Company Number: ZA-SAKK-2018SA339047AA

PATIENT
  Age: 69 Year
  Sex: Female

DRUGS (5)
  1. INSULIN GLULISINE [Suspect]
     Active Substance: INSULIN GLULISINE
     Dosage: BL-8U, BS-6MG, BB-6MG, TID
     Dates: start: 20181016
  2. DIAGLUCIDE [Concomitant]
     Active Substance: GLICLAZIDE
     Dosage: 120 MG, QD, AFTER BREAKFAST
     Dates: start: 20180903
  3. OPTISULIN (INSULIN GLARGINE) [Suspect]
     Active Substance: INSULIN GLARGINE
     Dosage: 29 U, HS, AT BEDTIME
     Dates: start: 20180829
  4. ASPAVOR [Concomitant]
     Active Substance: ATORVASTATIN
     Dosage: 10 MG, HS AT BEDTIME
     Dates: start: 20180903
  5. PREXUM PLUS [INDAPAMIDE;PERINDOPRIL ERBUMINE] [Concomitant]
     Active Substance: INDAPAMIDE\PERINDOPRIL ERBUMINE
     Dosage: 5 MG, QD (BEFROE BREAKFAST)
     Dates: start: 20180903

REACTIONS (7)
  - Hyperhidrosis [Recovered/Resolved]
  - Glycosylated haemoglobin increased [Unknown]
  - Blood glucose decreased [Recovered/Resolved]
  - Bladder operation [Unknown]
  - Hospitalisation [Unknown]
  - Nervousness [Recovered/Resolved]
  - Intentional dose omission [Unknown]

NARRATIVE: CASE EVENT DATE: 20181203
